FAERS Safety Report 18205739 (Version 2)
Quarter: 2020Q3

REPORT INFORMATION
  Report Type: Spontaneous
  Country: JP (occurrence: JP)
  Receive Date: 20200827
  Receipt Date: 20200912
  Transmission Date: 20201103
  Serious: Yes (Other)
  Sender: FDA-Public Use
  Company Number: JP-SEATTLE GENETICS-2020SGN03828

PATIENT
  Age: 3 Decade
  Sex: Female

DRUGS (1)
  1. ADCETRIS [Suspect]
     Active Substance: BRENTUXIMAB VEDOTIN
     Indication: HODGKIN^S DISEASE RECURRENT
     Dosage: 1.8 MILLIGRAM
     Route: 042
     Dates: start: 201704, end: 202004

REACTIONS (4)
  - Hodgkin^s disease [Unknown]
  - Hodgkin^s disease [Unknown]
  - Disease progression [Unknown]
  - Disease progression [Unknown]

NARRATIVE: CASE EVENT DATE: 201810
